FAERS Safety Report 22521621 (Version 1)
Quarter: 2023Q2

REPORT INFORMATION
  Report Type: Spontaneous
  Country: FR (occurrence: FR)
  Receive Date: 20230605
  Receipt Date: 20230605
  Transmission Date: 20230721
  Serious: Yes (Other)
  Sender: FDA-Public Use
  Company Number: None

PATIENT
  Age: 63 Year
  Sex: Male
  Weight: 82 kg

DRUGS (6)
  1. BRODALUMAB [Suspect]
     Active Substance: BRODALUMAB
     Indication: Psoriasis
     Dosage: 210 MG,1 IN 2 WK
     Route: 058
     Dates: start: 20181219, end: 20230107
  2. BRODALUMAB [Suspect]
     Active Substance: BRODALUMAB
     Indication: Psoriatic arthropathy
  3. NEBIVOLOL [Concomitant]
     Active Substance: NEBIVOLOL
     Indication: Prophylaxis
  4. ROSUVASTATIN CALCIUM [Concomitant]
     Active Substance: ROSUVASTATIN CALCIUM
     Indication: Dyslipidaemia
  5. JANUMET [Concomitant]
     Active Substance: METFORMIN HYDROCHLORIDE\SITAGLIPTIN PHOSPHATE
     Indication: Diabetes mellitus
     Dosage: 50 MG/1000 MG
  6. CANDESARTAN CILEXETIL [Concomitant]
     Active Substance: CANDESARTAN CILEXETIL
     Indication: Prophylaxis

REACTIONS (2)
  - Lung disorder [Recovered/Resolved]
  - Bronchiolitis [Recovered/Resolved]

NARRATIVE: CASE EVENT DATE: 20230107
